FAERS Safety Report 7784487-2 (Version None)
Quarter: 2011Q3

REPORT INFORMATION
  Report Type: 
  Country: None (occurrence: None)
  Receive Date: 20110928
  Receipt Date: 20110922
  Transmission Date: 20111222
  Serious: Yes (Other)
  Sender: FDA-Public Use
  Company Number: GXKR2011DE02898

PATIENT
  Sex: Male
  Weight: 60.8 kg

DRUGS (1)
  1. ENALAPRIL MALEATE [Suspect]
     Indication: NEPHROPATHY
     Dosage: 10 MG, UNK
     Route: 048

REACTIONS (2)
  - DEPRESSION [None]
  - SCHIZOAFFECTIVE DISORDER [None]
